FAERS Safety Report 9417712 (Version 1)
Quarter: 2013Q3

REPORT INFORMATION
  Report Type: Spontaneous
  Country: JP (occurrence: JP)
  Receive Date: 20130724
  Receipt Date: 20130724
  Transmission Date: 20140515
  Serious: Yes (Hospitalization)
  Sender: FDA-Public Use
  Company Number: JP-CUBIST PHARMACEUTICALS, INC.-2013CBST000641

PATIENT
  Sex: 0

DRUGS (4)
  1. CUBICIN [Suspect]
     Indication: STAPHYLOCOCCAL SEPSIS
     Dosage: 6 MG/KG, ONCE DAILY
     Route: 041
     Dates: start: 20130711, end: 20130712
  2. CUBICIN [Suspect]
     Indication: OFF LABEL USE
     Dosage: 350 MG, ONCE DAILY
     Route: 041
     Dates: start: 20130711, end: 20130712
  3. MEROPENEM [Concomitant]
     Indication: SEPSIS
     Dosage: UNK UNK, UNK
     Route: 041
     Dates: start: 201307, end: 201307
  4. SULPERAZON [Concomitant]
     Indication: SEPSIS
     Dosage: UNK UNK, UNK
     Route: 041

REACTIONS (1)
  - Haematuria [Not Recovered/Not Resolved]
